FAERS Safety Report 4881039-9 (Version None)
Quarter: 2005Q4

REPORT INFORMATION
  Report Type: 
  Country: None (occurrence: None)
  Receive Date: 20051223
  Receipt Date: 20051025
  Transmission Date: 20060501
  Serious: No
  Sender: FDA-Public Use
  Company Number: 05P-163-0315045-00

PATIENT
  Age: 67 Year
  Sex: Female
  Weight: 78.4723 kg

DRUGS (12)
  1. HUMIRA [Suspect]
     Indication: RHEUMATOID ARTHRITIS
     Dosage: 40 MG, 1 IN 2 WK, SUBCUTANEOUS
     Route: 058
     Dates: start: 20031101, end: 20051003
  2. HUMIRA [Suspect]
     Indication: RHEUMATOID ARTHRITIS
     Dosage: 40 MG, 1 IN 2 WK, SUBCUTANEOUS
     Route: 058
     Dates: start: 20051023
  3. HYDROXYCHLOROQUINE PHOSPHATE [Concomitant]
  4. METHOTREXATE [Concomitant]
  5. FOLIC ACID [Concomitant]
  6. PREDNISONE [Concomitant]
  7. IBUPROFEN [Concomitant]
  8. VICODIN [Concomitant]
  9. ACETYLSALICYLIC ACID SRT [Concomitant]
  10. CLONAZEPAM [Concomitant]
  11. LISINOPRIL [Concomitant]
  12. HYDROCHLOROTHIAZIDE [Concomitant]

REACTIONS (3)
  - DEHYDRATION [None]
  - EAR DISCOMFORT [None]
  - SINUSITIS [None]
